FAERS Safety Report 9522630 (Version 1)
Quarter: 2013Q3

REPORT INFORMATION
  Report Type: Spontaneous
  Country: US (occurrence: US)
  Receive Date: 20130913
  Receipt Date: 20130913
  Transmission Date: 20140515
  Serious: Yes (Other)
  Sender: FDA-Public Use
  Company Number: US-PFIZER INC-2013260014

PATIENT
  Age: 55 Year
  Sex: Female
  Weight: 63.49 kg

DRUGS (7)
  1. EFFEXOR XR [Suspect]
     Indication: DEPRESSION
     Dosage: 150 MG, 2X/DAY
     Route: 048
     Dates: start: 2011, end: 201201
  2. COUMADIN [Concomitant]
     Dosage: UNK
  3. TIKOSYN [Concomitant]
     Dosage: UNK
  4. LOPRESSOR [Concomitant]
     Dosage: UNK
  5. CARDIZEM [Concomitant]
     Dosage: UNK
  6. LASIX [Concomitant]
     Dosage: UNK
  7. POTASSIUM CHLORIDE [Concomitant]
     Dosage: UNK

REACTIONS (1)
  - Gastric disorder [Unknown]
